FAERS Safety Report 7968351-1 (Version None)
Quarter: 2011Q4

REPORT INFORMATION
  Report Type: 
  Country: None (occurrence: None)
  Receive Date: 20111209
  Receipt Date: 20111129
  Transmission Date: 20120403
  Serious: Yes (Hospitalization)
  Sender: FDA-Public Use
  Company Number: US-BAYER-2011-023290

PATIENT
  Age: 18 Year
  Sex: Female
  Weight: 56.689 kg

DRUGS (4)
  1. MACROBID [Concomitant]
     Dosage: UNK UNK, BID
     Route: 048
     Dates: start: 20090218
  2. YAZ [Suspect]
     Indication: DYSMENORRHOEA
  3. MULTI-VITAMIN [Concomitant]
  4. YAZ [Suspect]
     Indication: CONTRACEPTION
     Dosage: UNK
     Dates: start: 20090101, end: 20090325

REACTIONS (9)
  - ANXIETY [None]
  - PSYCHOLOGICAL TRAUMA [None]
  - FEAR [None]
  - PLEURISY [None]
  - ANHEDONIA [None]
  - INJURY [None]
  - PAIN [None]
  - PULMONARY EMBOLISM [None]
  - EMOTIONAL DISTRESS [None]
